FAERS Safety Report 10418303 (Version 3)
Quarter: 2015Q2

REPORT INFORMATION
  Report Type: Spontaneous
  Country: US (occurrence: US)
  Receive Date: 20140829
  Receipt Date: 20150524
  Transmission Date: 20150821
  Serious: Yes (Other)
  Sender: FDA-Public Use
  Company Number: US-JNJFOC-20140816709

PATIENT

DRUGS (3)
  1. MITOMYCIN C [Suspect]
     Active Substance: MITOMYCIN
     Indication: HEPATOCELLULAR CARCINOMA
     Route: 013
  2. CISPLATIN. [Suspect]
     Active Substance: CISPLATIN
     Indication: HEPATOCELLULAR CARCINOMA
     Route: 013
  3. DOXORUBICIN HYDROCHLORIDE. [Suspect]
     Active Substance: DOXORUBICIN HYDROCHLORIDE
     Indication: HEPATOCELLULAR CARCINOMA
     Route: 013

REACTIONS (18)
  - Headache [Unknown]
  - Aspartate aminotransferase abnormal [Unknown]
  - Hyperbilirubinaemia [Unknown]
  - Abdominal pain [Unknown]
  - Pyrexia [Unknown]
  - Incorrect route of drug administration [Unknown]
  - Decreased appetite [Unknown]
  - Nausea [Unknown]
  - Product use issue [Unknown]
  - Vomiting [Unknown]
  - Diarrhoea [Unknown]
  - Dyspnoea [Unknown]
  - Blood alkaline phosphatase abnormal [Unknown]
  - Ascites [Unknown]
  - Muscular weakness [Unknown]
  - Blood albumin abnormal [Unknown]
  - Alanine aminotransferase abnormal [Unknown]
  - Fatigue [Unknown]
